FAERS Safety Report 12233823 (Version 4)
Quarter: 2016Q4

REPORT INFORMATION
  Report Type: Spontaneous
  Country: US (occurrence: US)
  Receive Date: 20160404
  Receipt Date: 20161209
  Transmission Date: 20170207
  Serious: No
  Sender: FDA-Public Use
  Company Number: US-ASTRAZENECA-2016SE32674

PATIENT
  Sex: Female
  Weight: 77.1 kg

DRUGS (2)
  1. SYMBICORT [Suspect]
     Active Substance: BUDESONIDE\FORMOTEROL FUMARATE DIHYDRATE
     Indication: PNEUMONIA
     Dosage: 160/4.5 MCG, 120, 2 PUFFS TWICE DAILY.
     Route: 055
     Dates: start: 20160311
  2. SYMBICORT [Suspect]
     Active Substance: BUDESONIDE\FORMOTEROL FUMARATE DIHYDRATE
     Indication: PNEUMONIA
     Dosage: 160/4.5 MCG, 120, 1 PUFF TWICE DAILY
     Route: 055

REACTIONS (4)
  - Accidental underdose [Unknown]
  - Product use issue [Unknown]
  - Tremor [Unknown]
  - Device malfunction [Unknown]
